FAERS Safety Report 23143605 (Version 2)
Quarter: 2023Q4

REPORT INFORMATION
  Report Type: Report from Study
  Country: MX (occurrence: MX)
  Receive Date: 20231103
  Receipt Date: 20231107
  Transmission Date: 20240110
  Serious: Yes (Other)
  Sender: FDA-Public Use
  Company Number: MX-002147023-NVSC2023MX233439

PATIENT
  Age: 52 Year
  Sex: Female
  Weight: 73 kg

DRUGS (1)
  1. KISQALI [Suspect]
     Active Substance: RIBOCICLIB
     Indication: Breast cancer
     Dosage: 3 DOSAGE FORM, QD (IN THE MORNING)
     Route: 048
     Dates: start: 20221230

REACTIONS (17)
  - Malignant neoplasm of spinal cord [Unknown]
  - Bone cancer [Unknown]
  - Second primary malignancy [Unknown]
  - COVID-19 [Unknown]
  - Decreased appetite [Unknown]
  - Tremor [Unknown]
  - Cell death [Unknown]
  - Ageusia [Unknown]
  - Gait disturbance [Unknown]
  - Dysstasia [Unknown]
  - Pain [Recovered/Resolved]
  - Pain [Unknown]
  - Inflammation [Unknown]
  - Back pain [Recovered/Resolved]
  - Fatigue [Unknown]
  - Asthenia [Unknown]
  - Malaise [Unknown]

NARRATIVE: CASE EVENT DATE: 20221230
